FAERS Safety Report 5128873-8 (Version None)
Quarter: 2006Q4

REPORT INFORMATION
  Report Type: 
  Country: None (occurrence: None)
  Receive Date: 20061011
  Receipt Date: 20060925
  Transmission Date: 20070319
  Serious: Yes (Hospitalization)
  Sender: FDA-Public Use
  Company Number: 2006122006

PATIENT
  Sex: Female

DRUGS (3)
  1. CELEBREX [Suspect]
     Dates: start: 20020601, end: 20020901
  2. BEXTRA [Suspect]
     Dates: start: 20020228, end: 20020524
  3. VIOXX [Suspect]
     Dates: start: 19991218, end: 20020129

REACTIONS (1)
  - CEREBROVASCULAR ACCIDENT [None]
